FAERS Safety Report 4680255-9 (Version None)
Quarter: 2005Q2

REPORT INFORMATION
  Report Type: 
  Country: None (occurrence: None)
  Receive Date: 20050531
  Receipt Date: 20040513
  Transmission Date: 20051028
  Serious: Yes (Hospitalization)
  Sender: FDA-Public Use
  Company Number: JP-2004-025288

PATIENT
  Age: 53 Year
  Sex: Female

DRUGS (2)
  1. QUADRAMET [Suspect]
     Indication: BREAST CANCER RECURRENT
     Dosage: 1798.4 MBQ. 1 DOSE INTRAVENOUS
     Route: 042
     Dates: start: 20040316, end: 20040316
  2. QUADRAMET [Suspect]
     Indication: METASTASES TO BONE
     Dosage: 1798.4 MBQ. 1 DOSE INTRAVENOUS
     Route: 042
     Dates: start: 20040316, end: 20040316

REACTIONS (4)
  - CONDITION AGGRAVATED [None]
  - DISEASE PROGRESSION [None]
  - OSTEOLYSIS [None]
  - PAIN [None]
